FAERS Safety Report 8248427-4 (Version None)
Quarter: 2012Q1

REPORT INFORMATION
  Report Type: 
  Country: None (occurrence: None)
  Receive Date: 20120330
  Receipt Date: 20120328
  Transmission Date: 20120608
  Serious: Yes (Other)
  Sender: FDA-Public Use
  Company Number: US-WATSON-2012-04129

PATIENT
  Age: 39 Year
  Sex: Female

DRUGS (2)
  1. BACLOFEN [Suspect]
     Dosage: 15 MG, TID
     Route: 065
  2. BACLOFEN [Suspect]
     Indication: MUSCLE SPASMS
     Dosage: 30 MG, QID
     Route: 065

REACTIONS (6)
  - DRUG LEVEL INCREASED [None]
  - HYPOTENSION [None]
  - DRUG INEFFECTIVE [None]
  - CONFUSIONAL STATE [None]
  - FATIGUE [None]
  - TOXICITY TO VARIOUS AGENTS [None]
